FAERS Safety Report 7693058-8 (Version None)
Quarter: 2011Q3

REPORT INFORMATION
  Report Type: 
  Country: None (occurrence: None)
  Receive Date: 20110819
  Receipt Date: 20110816
  Transmission Date: 20111222
  Serious: Yes (Other)
  Sender: FDA-Public Use
  Company Number: BR-PFIZER INC-2011189177

PATIENT
  Age: 52 Year
  Sex: Female

DRUGS (3)
  1. LYRICA [Suspect]
     Dosage: 150 MG, 2X/DAY
     Route: 048
     Dates: start: 20101001
  2. SYNTHROID [Suspect]
     Indication: THYROID DISORDER
     Dosage: UNK
  3. OXYCONTIN [Concomitant]
     Dosage: UNK

REACTIONS (2)
  - PAIN [None]
  - ATRIAL FIBRILLATION [None]
